FAERS Safety Report 17350913 (Version 7)
Quarter: 2020Q2

REPORT INFORMATION
  Report Type: Report from Study
  Country: US (occurrence: US)
  Receive Date: 20200130
  Receipt Date: 20200512
  Transmission Date: 20200713
  Serious: Yes (Other)
  Sender: FDA-Public Use
  Company Number: NVSC2020US018134

PATIENT
  Age: 80 Year
  Sex: Female

DRUGS (1)
  1. BEOVU [Suspect]
     Active Substance: BROLUCIZUMAB-DBLL
     Indication: NEOVASCULAR AGE-RELATED MACULAR DEGENERATION
     Dosage: 6 MG (SINGLE DOSE)
     Route: 047
     Dates: start: 20200116

REACTIONS (3)
  - Blindness [Not Recovered/Not Resolved]
  - Drug ineffective [Unknown]
  - Cataract [Unknown]

NARRATIVE: CASE EVENT DATE: 20200116
